FAERS Safety Report 7813744-6 (Version None)
Quarter: 2011Q4

REPORT INFORMATION
  Report Type: 
  Country: None (occurrence: None)
  Receive Date: 20111014
  Receipt Date: 20111004
  Transmission Date: 20120403
  Serious: Yes (Death, Hospitalization, Other)
  Sender: FDA-Public Use
  Company Number: IR-PAR PHARMACEUTICAL, INC-2011SCPR003278

PATIENT

DRUGS (2)
  1. COTRIM [Suspect]
     Indication: URINARY TRACT INFECTION
     Dosage: 460 MG, BID
     Route: 065
  2. RISPERIDONE [Suspect]
     Indication: ACUTE PSYCHOSIS
     Dosage: 4 MG, DAILY
     Route: 065

REACTIONS (4)
  - CARDIAC ARREST [None]
  - VENTRICULAR FIBRILLATION [None]
  - ELECTROCARDIOGRAM QT PROLONGED [None]
  - SUDDEN CARDIAC DEATH [None]
